FAERS Safety Report 6873267-8 (Version None)
Quarter: 2010Q3

REPORT INFORMATION
  Report Type: 
  Country: None (occurrence: None)
  Receive Date: 20100723
  Receipt Date: 20090406
  Transmission Date: 20110219
  Serious: No
  Sender: FDA-Public Use
  Company Number: US-PFIZER INC-2009153072

PATIENT
  Sex: Female
  Weight: 74.842 kg

DRUGS (10)
  1. CHANTIX [Suspect]
     Indication: SMOKING CESSATION THERAPY
     Dosage: 0.5 MG, 1X/DAY
     Dates: start: 20090101, end: 20090106
  2. SINGULAIR [Concomitant]
     Dosage: UNK
  3. NEXIUM [Concomitant]
     Dosage: UNK
  4. PRENATAL VITAMINS [Concomitant]
     Dosage: UNK
  5. METHADONE HYDROCHLORIDE [Concomitant]
     Dosage: UNK
  6. BACLOFEN [Concomitant]
     Dosage: UNK
  7. ATIVAN [Concomitant]
     Dosage: UNK
  8. AMBIEN [Concomitant]
     Dosage: UNK
  9. MIDRIN [Concomitant]
     Dosage: UNK
  10. ORTHO TRI-CYCLEN LO [Concomitant]
     Dosage: UNK

REACTIONS (6)
  - CRYING [None]
  - FEELING ABNORMAL [None]
  - HEADACHE [None]
  - MUSCULAR WEAKNESS [None]
  - MYALGIA [None]
  - TREMOR [None]
